FAERS Safety Report 5028724-6 (Version None)
Quarter: 2006Q2

REPORT INFORMATION
  Report Type: 
  Country: None (occurrence: None)
  Receive Date: 20060619
  Receipt Date: 20060501
  Transmission Date: 20061013
  Serious: Yes (Hospitalization, Other)
  Sender: FDA-Public Use
  Company Number: JP-NOVOPROD-252956

PATIENT
  Age: 62 Year
  Sex: Male
  Weight: 68 kg

DRUGS (8)
  1. NOVORAPID 30 MIX CHU FLEXPEN [Suspect]
     Indication: INSULIN-REQUIRING TYPE II DIABETES MELLITUS
     Dosage: 10-20 IU, QD - DINNER
     Route: 058
     Dates: start: 20041217
  2. NOVORAPID CHU FLEXPEN [Suspect]
     Indication: INSULIN-REQUIRING TYPE II DIABETES MELLITUS
     Dosage: 12-28 IU, QD - BREAKFAST AND LUNCH
     Route: 058
     Dates: start: 20041217
  3. ALLOPURINOL [Concomitant]
     Dosage: 200 MG, QD
     Route: 048
     Dates: start: 19961126, end: 20050530
  4. ZANTAC [Concomitant]
     Dosage: 300 MG, QD
     Route: 048
     Dates: start: 19961126, end: 20050530
  5. URALYT U [Concomitant]
     Dosage: 3 G, QD
     Route: 048
     Dates: start: 19961126, end: 20060530
  6. CALSLOT [Concomitant]
     Dosage: 10 MG, QD
     Route: 048
     Dates: start: 19961126, end: 20050530
  7. KAMAG G [Concomitant]
     Dosage: 1.2 G, QD
     Route: 048
     Dates: start: 19961126, end: 20050530
  8. MEVALOTIN [Concomitant]
     Dosage: 10 MG, QD
     Route: 048
     Dates: start: 19961126, end: 20050530

REACTIONS (3)
  - ACUTE LYMPHOCYTIC LEUKAEMIA [None]
  - ACUTE LYMPHOCYTIC LEUKAEMIA RECURRENT [None]
  - HYPOGLYCAEMIA [None]
